FAERS Safety Report 18538929 (Version 1)
Quarter: 2020Q4

REPORT INFORMATION
  Report Type: Spontaneous
  Country: US (occurrence: US)
  Receive Date: 20201123
  Receipt Date: 20201123
  Transmission Date: 20210114
  Serious: Yes (Hospitalization)
  Sender: FDA-Public Use
  Company Number: None

PATIENT
  Age: 64 Year
  Sex: Female

DRUGS (9)
  1. REPATHA [Suspect]
     Active Substance: EVOLOCUMAB
     Indication: HYPERCHOLESTEROLAEMIA
     Dosage: ?          OTHER DOSE:1 PEN;?
     Route: 058
     Dates: start: 20191128
  2. CLOPIDOGREL [Suspect]
     Active Substance: CLOPIDOGREL BISULFATE
  3. ISOSORB MONO [Suspect]
     Active Substance: ISOSORBIDE MONONITRATE
  4. CARVEDILOL. [Suspect]
     Active Substance: CARVEDILOL
  5. GABAPENTIN. [Suspect]
     Active Substance: GABAPENTIN
  6. LOSARTAN POT [Suspect]
     Active Substance: LOSARTAN POTASSIUM
  7. SERTRALINE [Suspect]
     Active Substance: SERTRALINE HYDROCHLORIDE
  8. TRAZODONE [Suspect]
     Active Substance: TRAZODONE HYDROCHLORIDE
  9. FUROSEMIDE. [Suspect]
     Active Substance: FUROSEMIDE

REACTIONS (1)
  - Sciatic nerve injury [None]

NARRATIVE: CASE EVENT DATE: 20201121
